FAERS Safety Report 4878577-1 (Version None)
Quarter: 2006Q1

REPORT INFORMATION
  Report Type: 
  Country: None (occurrence: None)
  Receive Date: 20060112
  Receipt Date: 20060109
  Transmission Date: 20060701
  Serious: Yes (Hospitalization)
  Sender: FDA-Public Use
  Company Number: PHBS2006CH00637

PATIENT
  Age: 41 Year
  Sex: Male

DRUGS (2)
  1. RITALIN [Suspect]
     Indication: ATTENTION DEFICIT/HYPERACTIVITY DISORDER
     Dosage: 10-40 MG/DAY
     Route: 065
     Dates: start: 20051015, end: 20051026
  2. RITALIN LA [Suspect]
     Indication: ATTENTION DEFICIT/HYPERACTIVITY DISORDER
     Dosage: 20-40 MG/D
     Route: 048
     Dates: start: 20051027, end: 20051115

REACTIONS (3)
  - FLATULENCE [None]
  - INTESTINAL OBSTRUCTION [None]
  - INTESTINAL STENOSIS [None]
